FAERS Safety Report 5184258-X (Version None)
Quarter: 2006Q4

REPORT INFORMATION
  Report Type: 
  Country: None (occurrence: None)
  Receive Date: 20061220
  Receipt Date: 20060222
  Transmission Date: 20070319
  Serious: No
  Sender: FDA-Public Use
  Company Number: US-GLAXOSMITHKLINE-A0594700A

PATIENT
  Age: 42 Year
  Sex: Male

DRUGS (3)
  1. NICODERM CQ [Suspect]
  2. NICORETTE [Suspect]
  3. COMMIT [Suspect]

REACTIONS (7)
  - APPLICATION SITE BLEEDING [None]
  - APPLICATION SITE ERYTHEMA [None]
  - APPLICATION SITE REACTION [None]
  - APPLICATION SITE WARMTH [None]
  - HYPERSENSITIVITY [None]
  - NAUSEA [None]
  - NICOTINE DEPENDENCE [None]
